FAERS Safety Report 22190942 (Version 1)
Quarter: 2023Q2

REPORT INFORMATION
  Report Type: Spontaneous
  Country: US (occurrence: None)
  Receive Date: 20230407
  Receipt Date: 20230407
  Transmission Date: 20230722
  Serious: Yes (Other)
  Sender: FDA-Public Use
  Company Number: None

PATIENT
  Sex: Male

DRUGS (1)
  1. DIMETHYL FUMARATE [Suspect]
     Active Substance: DIMETHYL FUMARATE
     Dosage: FREQUENCY : TOTAL;?
     Route: 048

REACTIONS (4)
  - Off label use [None]
  - Vertigo [None]
  - Neck pain [None]
  - Dizziness [None]
